FAERS Safety Report 12728698 (Version 1)
Quarter: 2016Q3

REPORT INFORMATION
  Report Type: Spontaneous
  Country: US (occurrence: US)
  Receive Date: 20160907
  Receipt Date: 20160907
  Transmission Date: 20161109
  Serious: No
  Sender: FDA-Public Use
  Company Number: None

PATIENT
  Sex: Female

DRUGS (1)
  1. IBRANCE [Suspect]
     Active Substance: PALBOCICLIB
     Indication: BREAST CANCER
     Dosage: 100MG EVERY DAY FOR 21 DAYS, THEN OFF PO
     Route: 048
     Dates: start: 20160617

REACTIONS (4)
  - Peripheral swelling [None]
  - Back pain [None]
  - Hot flush [None]
  - Insomnia [None]
